FAERS Safety Report 8578643 (Version 2)
Quarter: 2014Q1

REPORT INFORMATION
  Report Type: Spontaneous
  Country: US (occurrence: US)
  Receive Date: 20120524
  Receipt Date: 20140113
  Transmission Date: 20141002
  Serious: Yes (Hospitalization)
  Sender: FDA-Public Use
  Company Number: US-GLAXOSMITHKLINE-A0933135A

PATIENT
  Age: 69 Year
  Sex: Male
  Weight: 134.6 kg

DRUGS (1)
  1. AVANDIA [Suspect]
     Indication: DIABETES MELLITUS
     Dosage: 4MG PER DAY
     Route: 048
     Dates: start: 200606, end: 200706

REACTIONS (4)
  - Angina unstable [Not Recovered/Not Resolved]
  - Cardiac failure congestive [Unknown]
  - Renal injury [Unknown]
  - Ischaemic cardiomyopathy [Unknown]
